FAERS Safety Report 5906262-3 (Version None)
Quarter: 2008Q4

REPORT INFORMATION
  Report Type: 
  Country: None (occurrence: None)
  Receive Date: 20081002
  Receipt Date: 20080922
  Transmission Date: 20090506
  Serious: Yes (Hospitalization)
  Sender: FDA-Public Use
  Company Number: US-PFIZER INC-2008080159

PATIENT
  Sex: Female

DRUGS (3)
  1. FLAGYL [Suspect]
     Indication: HELICOBACTER INFECTION
  2. TETRACYCLINE [Suspect]
     Indication: HELICOBACTER INFECTION
  3. ZANTAC [Suspect]
     Indication: HELICOBACTER INFECTION

REACTIONS (2)
  - DIARRHOEA [None]
  - WEIGHT DECREASED [None]
